FAERS Safety Report 18250025 (Version 1)
Quarter: 2020Q3

REPORT INFORMATION
  Report Type: Report from Study
  Country: US (occurrence: US)
  Receive Date: 20200909
  Receipt Date: 20200909
  Transmission Date: 20201103
  Serious: Yes (Hospitalization)
  Sender: FDA-Public Use
  Company Number: US-JNJFOC-20200842114

PATIENT
  Age: 67 Year
  Sex: Male
  Weight: 88.5 kg

DRUGS (5)
  1. STELARA [Suspect]
     Active Substance: USTEKINUMAB
  2. GLIPIZIDE. [Concomitant]
     Active Substance: GLIPIZIDE
  3. STELARA [Suspect]
     Active Substance: USTEKINUMAB
     Indication: PSORIASIS
     Route: 058
     Dates: start: 20161102
  4. SECUKINUMAB. [Suspect]
     Active Substance: SECUKINUMAB
     Indication: PSORIASIS
     Route: 058
     Dates: start: 20161102
  5. LOSARTAN. [Concomitant]
     Active Substance: LOSARTAN

REACTIONS (3)
  - Syncope [Recovered/Resolved]
  - Orthostatic hypotension [Recovered/Resolved]
  - Comminuted fracture [Recovered/Resolved]

NARRATIVE: CASE EVENT DATE: 20170226
